FAERS Safety Report 24542250 (Version 1)
Quarter: 2024Q4

REPORT INFORMATION
  Report Type: Spontaneous
  Country: DE (occurrence: DE)
  Receive Date: 20241023
  Receipt Date: 20241023
  Transmission Date: 20250115
  Serious: Yes (Other)
  Sender: UCB
  Company Number: DE-UCBSA-2024053927

PATIENT
  Age: 19 Year

DRUGS (7)
  1. FINTEPLA [Suspect]
     Active Substance: FENFLURAMINE
     Indication: Product used for unknown indication
     Dosage: 3 MILLIGRAM, 2X/DAY (BID)
  2. VALPROATE [Concomitant]
     Active Substance: VALPROIC ACID
     Indication: Product used for unknown indication
     Dosage: 300-0-450 MILLIGRAM
  3. CLOBAZAM [Concomitant]
     Active Substance: CLOBAZAM
     Indication: Product used for unknown indication
     Dosage: 1.4 MILLIGRAM, 2X/DAY (BID)
  4. CLOBAZAM [Concomitant]
     Active Substance: CLOBAZAM
     Dosage: 1.2 MILLIGRAM, 2X/DAY (BID)
  5. CANNABIDIOL [Concomitant]
     Active Substance: CANNABIDIOL
     Indication: Product used for unknown indication
     Dosage: 75 MILLIGRAM, 2X/DAY (BID)
  6. CANNABIDIOL [Concomitant]
     Active Substance: CANNABIDIOL
     Dosage: 100 MILLIGRAM, 2X/DAY (BID)
  7. STIRIPENTOL [Concomitant]
     Active Substance: STIRIPENTOL
     Indication: Product used for unknown indication
     Dosage: 218.75 MILLIGRAM, 2X/DAY (BID)

REACTIONS (1)
  - Myoclonus [Unknown]
